FAERS Safety Report 9399717 (Version 2)
Quarter: 2013Q3

REPORT INFORMATION
  Report Type: Report from Study
  Country: PR (occurrence: PR)
  Receive Date: 20130715
  Receipt Date: 20130809
  Transmission Date: 20140515
  Serious: Yes (Hospitalization)
  Sender: FDA-Public Use
  Company Number: PR-ABBOTT-13P-131-1116419-00

PATIENT
  Age: 58 Year
  Sex: Male
  Weight: 68.1 kg

DRUGS (6)
  1. HUMIRA [Suspect]
     Indication: PRODUCT USED FOR UNKNOWN INDICATION
     Dates: start: 2010, end: 20130427
  2. TRAZODONA [Concomitant]
     Indication: INSOMNIA
     Route: 048
  3. ATIVAN [Concomitant]
     Indication: MENTAL DISORDER
     Route: 048
  4. TEMAZEPAM [Concomitant]
     Indication: MENTAL DISORDER
     Route: 048
  5. PROZAC [Concomitant]
     Indication: MENTAL DISORDER
     Route: 048
  6. PROCAR [Concomitant]
     Indication: PROSTATIC DISORDER
     Route: 048

REACTIONS (2)
  - Renal failure [Recovered/Resolved]
  - Oesophageal achalasia [Recovered/Resolved]
